FAERS Safety Report 20032420 (Version 1)
Quarter: 2021Q4

REPORT INFORMATION
  Report Type: Other
  Country: ES (occurrence: None)
  Receive Date: 20211103
  Receipt Date: 20211103
  Transmission Date: 20220303
  Serious: Yes (Hospitalization)
  Sender: FDA-Public Use
  Company Number: ES-Invatech-000158

PATIENT
  Age: 32 Year
  Sex: Female

DRUGS (17)
  1. CALCITRIOL [Suspect]
     Active Substance: CALCITRIOL
     Indication: Hypocalcaemia
     Dosage: 1 MCG EVERY 24 H
     Dates: start: 20200223
  2. CALCIUM [Suspect]
     Active Substance: CALCIUM
     Indication: Hypocalcaemia
     Dosage: 5 G OF ORAL CALCIUM
     Route: 048
     Dates: start: 20200223
  3. CALCIUM CARBONATE [Suspect]
     Active Substance: CALCIUM CARBONATE
     Indication: Hypocalcaemia
     Dosage: 5000 MG
  4. VITAMIN D [Suspect]
     Active Substance: VITAMIN D NOS
     Indication: Hypocalcaemia
     Dosage: 1 MCG/24 H
  5. CALCITRIOL [Suspect]
     Active Substance: CALCITRIOL
     Indication: Hypocalcaemia
     Dosage: 0.5 MCG EVERY 12H
     Dates: start: 20200220, end: 20200223
  6. CALCITRIOL [Suspect]
     Active Substance: CALCITRIOL
     Indication: Hypocalcaemia
     Dosage: 1.25 MCG EVERY 24H
     Dates: start: 20200218, end: 20200220
  7. CALCITRIOL [Suspect]
     Active Substance: CALCITRIOL
     Indication: Hypocalcaemia
     Dosage: 1 MCG EVERY 24H
     Dates: start: 20200215, end: 20200218
  8. CALCITRIOL [Suspect]
     Active Substance: CALCITRIOL
     Indication: Hypocalcaemia
     Dosage: 0.5 MCG EVERY 24 H
     Dates: start: 20200212, end: 20200215
  9. CALCIUM [Suspect]
     Active Substance: CALCIUM
     Indication: Hypocalcaemia
     Dosage: 4 G OF ORAL CALCIUM
     Route: 048
     Dates: start: 20200220, end: 20200223
  10. CALCIUM [Suspect]
     Active Substance: CALCIUM
     Indication: Hypocalcaemia
     Dosage: 8 G OF ORAL CALCIUM
     Route: 048
     Dates: start: 20200218, end: 20200220
  11. CALCIUM [Suspect]
     Active Substance: CALCIUM
     Indication: Hypocalcaemia
     Dosage: 4 G OF ORAL CALCIUM
     Route: 048
     Dates: start: 20200215, end: 20200218
  12. CALCIUM [Suspect]
     Active Substance: CALCIUM
     Indication: Hypocalcaemia
     Dosage: 2 G OF ORAL CALCIUM
     Route: 048
     Dates: start: 20200212, end: 20200215
  13. CALCIUM CARBONATE [Suspect]
     Active Substance: CALCIUM CARBONATE
     Indication: Hypocalcaemia
     Dosage: 6 AMPOULES/24 H
  14. CALCIUM CARBONATE [Suspect]
     Active Substance: CALCIUM CARBONATE
     Indication: Hypocalcaemia
     Dosage: 8000 MG/24 H
  15. CALCIUM CARBONATE [Suspect]
     Active Substance: CALCIUM CARBONATE
     Indication: Hypocalcaemia
     Dosage: 1000 MG/6H
  16. CALCIUM CARBONATE [Suspect]
     Active Substance: CALCIUM CARBONATE
     Indication: Hypocalcaemia
     Dosage: 500 MG/6H
  17. VITAMIN D [Suspect]
     Active Substance: VITAMIN D NOS
     Indication: Hypocalcaemia
     Dosage: 0.25 MCG/12 H

REACTIONS (8)
  - Hypocalcaemia [Recovered/Resolved]
  - Disease recurrence [Recovered/Resolved]
  - Tetany [Recovered/Resolved]
  - Paraesthesia [Recovered/Resolved]
  - Trousseau^s sign [Recovered/Resolved]
  - Blood phosphorus increased [Recovered/Resolved]
  - Treatment failure [Unknown]
  - Drug ineffective [Unknown]
